FAERS Safety Report 10986701 (Version 2)
Quarter: 2015Q2

REPORT INFORMATION
  Report Type: Spontaneous
  Country: US (occurrence: US)
  Receive Date: 20150404
  Receipt Date: 20150525
  Transmission Date: 20150821
  Serious: No
  Sender: FDA-Public Use
  Company Number: US-JNJFOC-20140413435

PATIENT
  Age: 63 Year
  Sex: Female
  Weight: 73.48 kg

DRUGS (8)
  1. IMODIUM MULTI-SYMPTOM RELIEF [Suspect]
     Active Substance: DIMETHICONE\LOPERAMIDE HYDROCHLORIDE
     Route: 048
  2. BABY ASPIRIN [Concomitant]
     Active Substance: ASPIRIN
     Indication: PRODUCT USED FOR UNKNOWN INDICATION
     Dosage: USED FOR 3 YEARS
     Route: 065
  3. FERROUS SULFATE [Concomitant]
     Active Substance: FERROUS SULFATE\FERROUS SULFATE, DRIED
     Indication: NUTRITIONAL SUPPLEMENTATION
     Route: 065
  4. IMODIUM MULTI-SYMPTOM RELIEF [Suspect]
     Active Substance: DIMETHICONE\LOPERAMIDE HYDROCHLORIDE
     Indication: DIARRHOEA
     Route: 048
  5. METOPROLOL SUCCINATE. [Concomitant]
     Active Substance: METOPROLOL SUCCINATE
     Indication: HYPERTENSION
     Dosage: FOR 3 YEARS
     Route: 065
  6. CALCIUM [Concomitant]
     Active Substance: CALCIUM
     Indication: NUTRITIONAL SUPPLEMENTATION
     Route: 065
  7. VITAMIN D [Concomitant]
     Active Substance: CHOLECALCIFEROL
     Indication: NUTRITIONAL SUPPLEMENTATION
     Dosage: 2000 UNITS FOR 3 YEARS
     Route: 065
  8. AMLODIPINE / BENAZEPRIL [Concomitant]
     Indication: HYPERTENSION
     Dosage: 10-40 MG FOR 3 YEARS
     Route: 065

REACTIONS (9)
  - Retching [Unknown]
  - Product size issue [Unknown]
  - Dysphagia [Unknown]
  - Choking [Unknown]
  - Muscle spasms [Unknown]
  - Abdominal discomfort [Recovered/Resolved]
  - Abdominal distension [Unknown]
  - Drug administration error [Unknown]
  - Drug ineffective [Unknown]
